FAERS Safety Report 10066607 (Version 1)
Quarter: 2014Q2

REPORT INFORMATION
  Report Type: Spontaneous
  Country: IT (occurrence: IT)
  Receive Date: 20140408
  Receipt Date: 20140408
  Transmission Date: 20141212
  Serious: Yes (Other)
  Sender: FDA-Public Use
  Company Number: CHPA2014IT004995

PATIENT
  Sex: Female

DRUGS (2)
  1. BENEFIBER [Suspect]
     Dosage: UNK
  2. BENTELAN [Concomitant]

REACTIONS (5)
  - Hypersensitivity [Unknown]
  - Throat tightness [Unknown]
  - Asthma [Unknown]
  - Paraesthesia oral [Unknown]
  - Cough [Unknown]
